FAERS Safety Report 4403019-X (Version None)
Quarter: 2004Q3

REPORT INFORMATION
  Report Type: 
  Country: None (occurrence: None)
  Receive Date: 20040721
  Receipt Date: 20031110
  Transmission Date: 20050211
  Serious: No
  Sender: FDA-Public Use
  Company Number: US-GLAXOSMITHKLINE-A0439020A

PATIENT
  Sex: Female

DRUGS (5)
  1. IMITREX [Suspect]
     Indication: MIGRAINE
     Dosage: 25MG AS REQUIRED
     Route: 048
     Dates: start: 20030501
  2. ZOLOFT [Concomitant]
  3. KLONOPIN [Concomitant]
  4. LIPITOR [Concomitant]
  5. FEMHRT [Concomitant]

REACTIONS (3)
  - DRUG INEFFECTIVE [None]
  - LETHARGY [None]
  - STOMACH DISCOMFORT [None]
